FAERS Safety Report 4806145-6 (Version None)
Quarter: 2005Q4

REPORT INFORMATION
  Report Type: 
  Country: None (occurrence: None)
  Receive Date: 20051021
  Receipt Date: 20051004
  Transmission Date: 20060501
  Serious: Yes (Other)
  Sender: FDA-Public Use
  Company Number: PHFR2005GB03288

PATIENT
  Age: 51 Year
  Sex: Female

DRUGS (6)
  1. ATORVASTATIN [Concomitant]
     Indication: PROPHYLAXIS
     Dosage: 20MG DAILY
     Route: 048
     Dates: start: 20050901
  2. ASPIRIN [Concomitant]
     Indication: PROPHYLAXIS
     Dosage: 75MG DAILY
     Route: 048
     Dates: start: 20050901
  3. CLOZARIL [Suspect]
     Indication: SCHIZOPHRENIA
     Dosage: 250MG/DAY
     Route: 048
     Dates: start: 20041206
  4. CLOZARIL [Suspect]
     Dosage: 225MG/DAY
  5. PROPRANOLOL [Concomitant]
     Indication: TACHYCARDIA
     Dosage: 60MG DAILY
     Route: 048
  6. HYOSCINE HBR HYT [Concomitant]
     Indication: EXTRAPYRAMIDAL DISORDER
     Dosage: 600MG DAILY
     Route: 048

REACTIONS (4)
  - DIABETES MELLITUS [None]
  - DRUG LEVEL INCREASED [None]
  - FALL [None]
  - TRANSIENT ISCHAEMIC ATTACK [None]
